FAERS Safety Report 13714402 (Version 2)
Quarter: 2017Q3

REPORT INFORMATION
  Report Type: Spontaneous
  Country: US (occurrence: US)
  Receive Date: 20170704
  Receipt Date: 20170705
  Transmission Date: 20171127
  Serious: Yes (Other)
  Sender: FDA-Public Use
  Company Number: US-TEVA-784133USA

PATIENT
  Sex: Female

DRUGS (1)
  1. COPAXONE [Suspect]
     Active Substance: GLATIRAMER ACETATE
     Dosage: UNKNOWN FORM STRENGTH

REACTIONS (7)
  - Tachycardia [Unknown]
  - Erythema [Unknown]
  - Product quality issue [Unknown]
  - Chest pain [Unknown]
  - Dizziness [Unknown]
  - Drug ineffective [Unknown]
  - Dyspnoea [Unknown]
